FAERS Safety Report 9516650 (Version 1)
Quarter: 2013Q3

REPORT INFORMATION
  Report Type: Spontaneous
  Country: DE (occurrence: DE)
  Receive Date: 20130911
  Receipt Date: 20130911
  Transmission Date: 20140515
  Serious: Yes (Other)
  Sender: FDA-Public Use
  Company Number: DE-GLAXOSMITHKLINE-D0081089A

PATIENT
  Sex: Female

DRUGS (1)
  1. FORMIGRAN [Suspect]
     Route: 048

REACTIONS (1)
  - Loss of consciousness [Recovered/Resolved]
